FAERS Safety Report 7786051-8 (Version None)
Quarter: 2011Q3

REPORT INFORMATION
  Report Type: 
  Country: None (occurrence: None)
  Receive Date: 20110929
  Receipt Date: 20110916
  Transmission Date: 20111222
  Serious: Yes (Hospitalization)
  Sender: FDA-Public Use
  Company Number: US-ELI_LILLY_AND_COMPANY-US201107005167

PATIENT
  Sex: Female

DRUGS (10)
  1. WATER PILLS [Concomitant]
  2. ANTIHYPERTENSIVES [Concomitant]
  3. PRILOSEC [Concomitant]
  4. FORTEO [Suspect]
     Indication: OSTEOPOROSIS
     Dosage: 20 UG, QD
     Route: 065
     Dates: start: 20110519
  5. FORTEO [Suspect]
     Dosage: 20 UG, QD
     Route: 065
  6. ASPIRIN [Concomitant]
  7. FORTEO [Suspect]
     Dosage: 20 UG, QD
  8. MULTI-VITAMIN [Concomitant]
  9. FORTEO [Suspect]
     Dosage: 20 UG, QD
     Route: 065
  10. ANTIBIOTICS [Concomitant]
     Indication: INFECTION

REACTIONS (21)
  - FLATULENCE [None]
  - RASH MACULAR [None]
  - BACK PAIN [None]
  - ARTHRALGIA [None]
  - SWELLING [None]
  - THYROID NEOPLASM [None]
  - LYMPHADENOPATHY [None]
  - ORAL HERPES [None]
  - PAIN [None]
  - CHEST DISCOMFORT [None]
  - EXTRASYSTOLES [None]
  - CONSTIPATION [None]
  - DIZZINESS [None]
  - ANXIETY [None]
  - BLOOD PRESSURE DECREASED [None]
  - ORAL PAIN [None]
  - GINGIVAL SWELLING [None]
  - SCIATICA [None]
  - GAIT DISTURBANCE [None]
  - DIARRHOEA [None]
  - MUSCLE SPASMS [None]
